FAERS Safety Report 19804463 (Version 2)
Quarter: 2022Q3

REPORT INFORMATION
  Report Type: Spontaneous
  Country: US (occurrence: None)
  Receive Date: 20210908
  Receipt Date: 20220907
  Transmission Date: 20221026
  Serious: No
  Sender: FDA-Public Use
  Company Number: US-FARMAPROD-202106-0958

PATIENT
  Age: 90 Year
  Sex: Male

DRUGS (8)
  1. OXERVATE [Suspect]
     Active Substance: CENEGERMIN-BKBJ
     Indication: Neurotrophic keratopathy
     Route: 047
     Dates: start: 20210526
  2. ALPHAGAN P [Suspect]
     Active Substance: BRIMONIDINE TARTRATE
     Indication: Product used for unknown indication
     Dates: start: 20210308, end: 20210616
  3. Serum drops [Concomitant]
     Dates: start: 20210308
  4. ATORVASTATIN [Concomitant]
     Active Substance: ATORVASTATIN
  5. FINASTERIDE [Concomitant]
     Active Substance: FINASTERIDE
  6. LEVOTHYROXINE [Concomitant]
     Active Substance: LEVOTHYROXINE
  7. METOPROLOL [Concomitant]
     Active Substance: METOPROLOL
  8. TAMSULOSIN HYDROCHLORIDE [Concomitant]
     Active Substance: TAMSULOSIN HYDROCHLORIDE

REACTIONS (1)
  - Dizziness [Not Recovered/Not Resolved]

NARRATIVE: CASE EVENT DATE: 20210601
